FAERS Safety Report 7685593-3 (Version None)
Quarter: 2011Q3

REPORT INFORMATION
  Report Type: 
  Country: None (occurrence: None)
  Receive Date: 20110815
  Receipt Date: 20110815
  Transmission Date: 20111222
  Serious: Yes (Other)
  Sender: FDA-Public Use
  Company Number: None

PATIENT
  Age: 49 Year
  Sex: Male
  Weight: 106.5953 kg

DRUGS (1)
  1. OXYCODONE HCL [Suspect]
     Indication: SURGERY
     Dosage: JULY 20 2011 4 A DAY MOUTH  JULY 20TH TO 29TH
     Route: 048

REACTIONS (9)
  - LACRIMATION INCREASED [None]
  - VOMITING [None]
  - EYE IRRITATION [None]
  - SEDATION [None]
  - OCULAR HYPERAEMIA [None]
  - FATIGUE [None]
  - SOMNOLENCE [None]
  - ABDOMINAL PAIN UPPER [None]
  - HYPERHIDROSIS [None]
